FAERS Safety Report 14066703 (Version 1)
Quarter: 2017Q4

REPORT INFORMATION
  Report Type: Spontaneous
  Country: MX (occurrence: MX)
  Receive Date: 20171006
  Receipt Date: 20171006
  Transmission Date: 20180321
  Serious: No
  Sender: FDA-Public Use
  Company Number: None

PATIENT
  Age: 37 Year
  Sex: Male
  Weight: 65.25 kg

DRUGS (1)
  1. SULFUR SOAP [Suspect]
     Active Substance: SULFUR
     Indication: ACNE
     Dosage: ?          OTHER FREQUENCY:ONCE;?
     Route: 061

REACTIONS (4)
  - Erythema [None]
  - Dermatitis [None]
  - Dry skin [None]
  - Skin exfoliation [None]

NARRATIVE: CASE EVENT DATE: 20170922
